FAERS Safety Report 22288507 (Version 1)
Quarter: 2023Q2

REPORT INFORMATION
  Report Type: Spontaneous
  Country: CN (occurrence: CN)
  Receive Date: 20230505
  Receipt Date: 20230505
  Transmission Date: 20230722
  Serious: Yes (Other)
  Sender: FDA-Public Use
  Company Number: CN-PFIZER INC-PV202300078160

PATIENT
  Age: 55 Year
  Sex: Female
  Weight: 59 kg

DRUGS (2)
  1. EPIRUBICIN HYDROCHLORIDE [Suspect]
     Active Substance: EPIRUBICIN HYDROCHLORIDE
     Indication: Breast cancer
     Dosage: 140 MG, 1X/DAY
     Route: 041
     Dates: start: 20230401, end: 20230401
  2. CYCLOPHOSPHAMIDE [Suspect]
     Active Substance: CYCLOPHOSPHAMIDE
     Indication: Breast cancer
     Dosage: 0.9 G, 1X/DAY
     Route: 041
     Dates: start: 20230401, end: 20230401

REACTIONS (3)
  - Myelosuppression [Recovered/Resolved]
  - Hepatic function abnormal [Recovered/Resolved]
  - Asthenia [Unknown]

NARRATIVE: CASE EVENT DATE: 20230412
